FAERS Safety Report 5068799-1 (Version None)
Quarter: 2006Q3

REPORT INFORMATION
  Report Type: 
  Country: None (occurrence: None)
  Receive Date: 20060725
  Receipt Date: 20060712
  Transmission Date: 20061208
  Serious: Yes (Other)
  Sender: FDA-Public Use
  Company Number: 2006BH011784

PATIENT
  Age: 19 Month
  Sex: Male

DRUGS (1)
  1. ADVATE [Suspect]
     Indication: ACQUIRED HAEMOPHILIA
     Dosage: 200 U/KG; EVERY DAY

REACTIONS (2)
  - FACTOR VIII INHIBITION [None]
  - THERAPY NON-RESPONDER [None]
